FAERS Safety Report 4912599-7 (Version None)
Quarter: 2006Q1

REPORT INFORMATION
  Report Type: 
  Country: None (occurrence: None)
  Receive Date: 20060215
  Receipt Date: 20060208
  Transmission Date: 20060701
  Serious: Yes (Life-Threatening, Disabling, Other)
  Sender: FDA-Public Use
  Company Number: PL-GLAXOSMITHKLINE-B0410435A

PATIENT
  Age: 11 Year
  Sex: Male
  Weight: 30 kg

DRUGS (4)
  1. ZINNAT [Suspect]
     Route: 048
     Dates: start: 20060127, end: 20060127
  2. ALLERTEC [Concomitant]
     Route: 048
     Dates: start: 20060127, end: 20060127
  3. CARBOCISTEINE [Concomitant]
     Route: 048
     Dates: start: 20060127, end: 20060127
  4. ASCORUTICAL [Concomitant]
     Route: 048
     Dates: start: 20060127, end: 20060127

REACTIONS (6)
  - ANAPHYLACTIC SHOCK [None]
  - DYSPNOEA [None]
  - LOSS OF CONSCIOUSNESS [None]
  - SHOCK [None]
  - TRISMUS [None]
  - URTICARIA [None]
